FAERS Safety Report 4920796-X (Version None)
Quarter: 2006Q1

REPORT INFORMATION
  Report Type: 
  Country: None (occurrence: None)
  Receive Date: 20060217
  Receipt Date: 20060207
  Transmission Date: 20060701
  Serious: Yes (Other)
  Sender: FDA-Public Use
  Company Number: 430009K06USA

PATIENT
  Age: 52 Year
  Sex: Female
  Weight: 52.2 kg

DRUGS (1)
  1. NOVANTRONE [Suspect]
     Indication: MULTIPLE SCLEROSIS
     Dosage: 12 MG/M2, 1 IN 3 MONTHS, INTREAVENOUS
     Route: 042
     Dates: start: 20050630

REACTIONS (7)
  - BLOOD POTASSIUM DECREASED [None]
  - EJECTION FRACTION DECREASED [None]
  - FATIGUE [None]
  - INFUSION SITE REACTION [None]
  - INJECTION SITE THROMBOSIS [None]
  - MUSCLE SPASTICITY [None]
  - VENOUS THROMBOSIS [None]
